FAERS Safety Report 24808984 (Version 1)
Quarter: 2025Q1

REPORT INFORMATION
  Report Type: Spontaneous
  Country: US (occurrence: US)
  Receive Date: 20250106
  Receipt Date: 20250106
  Transmission Date: 20250408
  Serious: No
  Sender: TERSERA THERAPEUTICS
  Company Number: US-TERSERA THERAPEUTICS LLC-2024TRS002653

PATIENT

DRUGS (2)
  1. PRIALT [Suspect]
     Active Substance: ZICONOTIDE ACETATE
     Indication: Neuropathy peripheral
     Route: 037
  2. HYDROMORPHONE [Suspect]
     Active Substance: HYDROMORPHONE
     Indication: Neuropathy peripheral
     Route: 065

REACTIONS (6)
  - Formication [Recovering/Resolving]
  - Feeling abnormal [Recovering/Resolving]
  - Anxiety [Recovering/Resolving]
  - Drug ineffective [Unknown]
  - Off label use [Unknown]
  - Product use issue [Unknown]

NARRATIVE: CASE EVENT DATE: 20240520
